FAERS Safety Report 9795418 (Version 2)
Quarter: 2014Q1

REPORT INFORMATION
  Report Type: Report from Study
  Country: US (occurrence: US)
  Receive Date: 20140103
  Receipt Date: 20140228
  Transmission Date: 20141002
  Serious: Yes (Other)
  Sender: FDA-Public Use
  Company Number: US-JNJFOC-20131217273

PATIENT
  Age: 74 Year
  Sex: Female
  Weight: 93.9 kg

DRUGS (10)
  1. XARELTO [Suspect]
     Indication: CEREBROVASCULAR ACCIDENT PROPHYLAXIS
     Route: 048
     Dates: start: 201307
  2. XARELTO [Suspect]
     Indication: ATRIAL FIBRILLATION
     Route: 048
     Dates: start: 201307
  3. TIKOSYN [Concomitant]
     Indication: ARRHYTHMIA
     Route: 048
     Dates: start: 20131226
  4. TIKOSYN [Concomitant]
     Indication: ARRHYTHMIA
     Route: 048
     Dates: start: 201209, end: 20131225
  5. LOPRESSOR [Concomitant]
     Indication: HEART RATE INCREASED
     Route: 048
  6. ZOCOR [Concomitant]
     Indication: BLOOD CHOLESTEROL
     Route: 048
  7. SYNTHROID [Concomitant]
     Indication: THYROID DISORDER
     Route: 048
     Dates: end: 2013
  8. SYNTHROID [Concomitant]
     Indication: THYROID DISORDER
     Route: 048
     Dates: start: 2013
  9. RESTORIL [Concomitant]
     Indication: SLEEP APNOEA SYNDROME
     Route: 048
     Dates: start: 2012
  10. RESTASIS [Concomitant]
     Indication: DRY EYE
     Dosage: ONE DROP EACH EYE TWICE DAILY
     Route: 047

REACTIONS (7)
  - Helicobacter infection [Not Recovered/Not Resolved]
  - Hiatus hernia [Not Recovered/Not Resolved]
  - Diverticulitis [Not Recovered/Not Resolved]
  - Oesophageal stenosis [Not Recovered/Not Resolved]
  - Gastric polyps [Not Recovered/Not Resolved]
  - Renal function test abnormal [Not Recovered/Not Resolved]
  - Gastrooesophageal reflux disease [Not Recovered/Not Resolved]
